FAERS Safety Report 6579637-X (Version None)
Quarter: 2010Q1

REPORT INFORMATION
  Report Type: 
  Country: None (occurrence: None)
  Receive Date: 20100212
  Receipt Date: 20100127
  Transmission Date: 20100710
  Serious: No
  Sender: FDA-Public Use
  Company Number: US-ROXANE LABORATORIES, INC.-2010-RO-00100RO

PATIENT
  Sex: Male

DRUGS (2)
  1. RAMIPRIL [Suspect]
     Indication: HYPERTENSION
     Dosage: 5 MG
     Dates: start: 20090930
  2. RAMIPRIL [Suspect]
     Dosage: 10 MG
     Dates: start: 20100124

REACTIONS (1)
  - DRUG INEFFECTIVE [None]
